FAERS Safety Report 5027391-5 (Version None)
Quarter: 2006Q2

REPORT INFORMATION
  Report Type: 
  Country: None (occurrence: None)
  Receive Date: 20060501
  Receipt Date: 20060210
  Transmission Date: 20061013
  Serious: Yes (Disabling)
  Sender: FDA-Public Use
  Company Number: 200610818BWH

PATIENT
  Age: 54 Year
  Sex: Male
  Weight: 81.6475 kg

DRUGS (4)
  1. NEXAVAR [Suspect]
     Dosage: SEE IMAGE, ORAL
     Route: 048
     Dates: start: 20060201, end: 20060210
  2. NEXAVAR [Suspect]
     Dosage: SEE IMAGE, ORAL
     Route: 048
     Dates: start: 20060306
  3. VYTORIN [Concomitant]
  4. EXTRA STRENGTH TYLENOL [Concomitant]

REACTIONS (11)
  - ARTHRALGIA [None]
  - BLISTER [None]
  - DIARRHOEA [None]
  - EATING DISORDER [None]
  - HYPERAESTHESIA [None]
  - MALAISE [None]
  - MOBILITY DECREASED [None]
  - PAIN IN EXTREMITY [None]
  - PALMAR-PLANTAR ERYTHRODYSAESTHESIA SYNDROME [None]
  - STOMATITIS [None]
  - TONGUE BLISTERING [None]
